FAERS Safety Report 9792109 (Version 1)
Quarter: 2013Q4

REPORT INFORMATION
  Report Type: Spontaneous
  Country: US (occurrence: None)
  Receive Date: 20131231
  Receipt Date: 20131231
  Transmission Date: 20140711
  Serious: Yes (Death)
  Sender: FDA-Public Use
  Company Number: None

PATIENT
  Age: 63 Year
  Sex: Male
  Weight: 88.91 kg

DRUGS (5)
  1. DICLOFENAC [Suspect]
     Indication: KNEE ARTHROPLASTY
     Route: 048
     Dates: end: 20131209
  2. EXFORGE [Suspect]
  3. TRAMADOL [Concomitant]
  4. BABY ASPIRIN [Concomitant]
  5. CENTRUM [Concomitant]

REACTIONS (1)
  - Myocardial infarction [None]
